FAERS Safety Report 23886087 (Version 1)
Quarter: 2024Q2

REPORT INFORMATION
  Report Type: Spontaneous
  Country: FR (occurrence: FR)
  Receive Date: 20240522
  Receipt Date: 20240522
  Transmission Date: 20240716
  Serious: Yes (Other)
  Sender: FDA-Public Use
  Company Number: None

PATIENT
  Age: 59 Year
  Sex: Male

DRUGS (2)
  1. KETOPROFEN [Suspect]
     Active Substance: KETOPROFEN
     Indication: Orchitis
     Dosage: 100MG 2X/DAY
     Route: 048
     Dates: start: 202305, end: 202305
  2. AMOXICILLIN [Suspect]
     Active Substance: AMOXICILLIN
     Indication: Orchitis
     Dosage: 1G 2X/DAY
     Route: 048
     Dates: start: 202305, end: 202305

REACTIONS (8)
  - Oedema peripheral [Recovered/Resolved]
  - Odynophagia [Recovered/Resolved]
  - Pharyngeal oedema [Recovered/Resolved]
  - Rash pruritic [Recovered/Resolved]
  - Dysphagia [Recovered/Resolved]
  - Paraesthesia [Recovered/Resolved]
  - Oedema peripheral [Recovered/Resolved]
  - Lip oedema [Recovered/Resolved]

NARRATIVE: CASE EVENT DATE: 20230501
